FAERS Safety Report 16120528 (Version 1)
Quarter: 2019Q1

REPORT INFORMATION
  Report Type: Spontaneous
  Country: US (occurrence: US)
  Receive Date: 20190326
  Receipt Date: 20190326
  Transmission Date: 20190418
  Serious: No
  Sender: FDA-Public Use
  Company Number: US-INCYTE CORPORATION-2019IN002657

PATIENT

DRUGS (1)
  1. JAKAFI [Suspect]
     Active Substance: RUXOLITINIB
     Indication: ESSENTIAL HYPERTENSION
     Dosage: 10 MG, BID
     Route: 048

REACTIONS (7)
  - Asthenia [Unknown]
  - White blood cell count abnormal [Unknown]
  - Depressed mood [Unknown]
  - Pain [Unknown]
  - Platelet count abnormal [Unknown]
  - Off label use [Unknown]
  - Increased tendency to bruise [Unknown]
